FAERS Safety Report 7460091-0 (Version None)
Quarter: 2011Q2

REPORT INFORMATION
  Report Type: 
  Country: None (occurrence: None)
  Receive Date: 20110505
  Receipt Date: 20110503
  Transmission Date: 20111010
  Serious: Yes (Death)
  Sender: FDA-Public Use
  Company Number: PHHY2011FR37352

PATIENT
  Age: 54 Year
  Sex: Male

DRUGS (4)
  1. AMN107 [Suspect]
     Dosage: 400 MG, BID
     Route: 048
     Dates: start: 20080605
  2. GLYBURIDE [Concomitant]
     Dosage: 5 MG, TID
  3. AMLODIPINE BESYLATE [Concomitant]
     Dosage: 1 DF, QD
  4. GLUCOPHAGE [Concomitant]
     Dosage: 500 MG, TID
     Route: 048

REACTIONS (3)
  - MYALGIA [None]
  - DEATH [None]
  - DERMATITIS ALLERGIC [None]
